FAERS Safety Report 6789748-1 (Version None)
Quarter: 2010Q2

REPORT INFORMATION
  Report Type: 
  Country: None (occurrence: None)
  Receive Date: 20100624
  Receipt Date: 20100618
  Transmission Date: 20101027
  Serious: Yes (Life-Threatening)
  Sender: FDA-Public Use
  Company Number: FR-KINGPHARMUSA00001-K201000771

PATIENT
  Sex: Female

DRUGS (2)
  1. ALTACE [Suspect]
     Dosage: UNK
  2. HYDROCHLOROTHIAZIDE [Suspect]
     Dosage: UNK

REACTIONS (1)
  - TRACHEOSTOMY [None]
